FAERS Safety Report 8308209-1 (Version None)
Quarter: 2012Q2

REPORT INFORMATION
  Report Type: 
  Country: None (occurrence: None)
  Receive Date: 20120424
  Receipt Date: 20120419
  Transmission Date: 20120825
  Serious: Yes (Death, Hospitalization)
  Sender: FDA-Public Use
  Company Number: HK-ROCHE-1055502

PATIENT
  Sex: Female
  Weight: 69.7 kg

DRUGS (2)
  1. CISPLATIN [Suspect]
     Indication: NASOPHARYNGEAL CANCER
     Dosage: DATE OF LAST DOSE PRIOR TO EVENT: 1/MAR/2012
     Route: 042
     Dates: start: 20120301
  2. XELODA [Suspect]
     Indication: NASOPHARYNGEAL CANCER
     Dosage: DATE OF LAST DOSE PRIOR TO EVENT: 14/MAR/2012
     Route: 048
     Dates: start: 20120301

REACTIONS (1)
  - UPPER GASTROINTESTINAL HAEMORRHAGE [None]
